FAERS Safety Report 18348074 (Version 1)
Quarter: 2020Q4

REPORT INFORMATION
  Report Type: Report from Study
  Country: CA (occurrence: CA)
  Receive Date: 20201006
  Receipt Date: 20201006
  Transmission Date: 20210114
  Serious: Yes (Other)
  Sender: FDA-Public Use
  Company Number: CA-GLAXOSMITHKLINE-CA2020AMR197156

PATIENT
  Sex: Female

DRUGS (3)
  1. MEPOLIZUMAB [Suspect]
     Active Substance: MEPOLIZUMAB
     Indication: ASTHMA
     Dosage: 100 MG
     Route: 042
     Dates: start: 20191030
  2. PULMICORT TURBUHALER [Suspect]
     Active Substance: BUDESONIDE
     Indication: PRODUCT USED FOR UNKNOWN INDICATION
     Dosage: 2 PUFF(S), QD
  3. REACTINE [CETIRIZINE HYDROCHLORIDE] [Suspect]
     Active Substance: CETIRIZINE HYDROCHLORIDE
     Indication: PRODUCT USED FOR UNKNOWN INDICATION
     Dosage: 20 MG, AS NEEDED

REACTIONS (10)
  - Rhinorrhoea [Unknown]
  - Asphyxia [Unknown]
  - Cough [Unknown]
  - Joint swelling [Unknown]
  - COVID-19 [Unknown]
  - Bronchial obstruction [Recovering/Resolving]
  - Weight increased [Unknown]
  - Nasal congestion [Unknown]
  - Paraesthesia [Unknown]
  - Arthralgia [Unknown]
